FAERS Safety Report 24138415 (Version 3)
Quarter: 2024Q3

REPORT INFORMATION
  Report Type: Spontaneous
  Country: JP (occurrence: JP)
  Receive Date: 20240725
  Receipt Date: 20240808
  Transmission Date: 20241017
  Serious: Yes (Death)
  Sender: EISAI
  Company Number: JP-Eisai-202403863_HAL-STS_P_1

PATIENT
  Age: 8 Decade
  Sex: Male

DRUGS (1)
  1. HALAVEN [Suspect]
     Active Substance: ERIBULIN MESYLATE
     Indication: Soft tissue sarcoma
     Dosage: DOSE  UNKNOWN
     Route: 041

REACTIONS (4)
  - Malignant neoplasm progression [Fatal]
  - Haematemesis [Recovering/Resolving]
  - Tumour haemorrhage [Unknown]
  - Haematochezia [Recovering/Resolving]
